FAERS Safety Report 8772527 (Version 1)
Quarter: 2012Q4

REPORT INFORMATION
  Report Type: Report from Study
  Country: CA (occurrence: CA)
  Receive Date: 20120905
  Receipt Date: 20120905
  Transmission Date: 20130627
  Serious: Yes (Other)
  Sender: FDA-Public Use
  Company Number: CA-JNJFOC-20120811595

PATIENT
  Sex: Male
  Weight: 101.5 kg

DRUGS (10)
  1. REMICADE [Suspect]
     Indication: CROHN^S DISEASE
     Route: 042
     Dates: start: 20070201
  2. JANUVIA [Concomitant]
     Route: 065
  3. ZANTAC [Concomitant]
     Route: 065
  4. PREVACID [Concomitant]
     Route: 065
  5. ATIVAN [Concomitant]
     Route: 065
  6. TYLENOL [Concomitant]
     Route: 065
  7. ATACAND [Concomitant]
     Route: 065
  8. CRESTOR [Concomitant]
     Route: 065
  9. METFORMIN [Concomitant]
     Route: 065
  10. DIAMICRON [Concomitant]
     Route: 065

REACTIONS (2)
  - Fatigue [Not Recovered/Not Resolved]
  - Gout [Not Recovered/Not Resolved]
